FAERS Safety Report 4366771-8 (Version None)
Quarter: 2004Q2

REPORT INFORMATION
  Report Type: 
  Country: None (occurrence: None)
  Receive Date: 20040528
  Receipt Date: 20040517
  Transmission Date: 20050107
  Serious: Yes (Other)
  Sender: FDA-Public Use
  Company Number: JP-JNJFOC-20040505939

PATIENT
  Age: 42 Year
  Sex: Male

DRUGS (3)
  1. HALDOL DECANOATE [Suspect]
     Indication: SCHIZOPHRENIA
     Route: 030
  2. SULTOPRIDE [Suspect]
     Indication: DRUG USE FOR UNKNOWN INDICATION
  3. BIPERIDEN HYDROCHLORIDE TAB [Suspect]

REACTIONS (6)
  - BLOOD CHOLESTEROL INCREASED [None]
  - BLOOD TRIGLYCERIDES INCREASED [None]
  - DIABETES MELLITUS [None]
  - GLYCOSURIA [None]
  - TYPE V HYPERLIPIDAEMIA [None]
  - XANTHOMA [None]
